FAERS Safety Report 5507622-5 (Version None)
Quarter: 2007Q4

REPORT INFORMATION
  Report Type: 
  Country: None (occurrence: None)
  Receive Date: 20071106
  Receipt Date: 20071024
  Transmission Date: 20080405
  Serious: Yes (Life-Threatening)
  Sender: FDA-Public Use
  Company Number: JP-ASTRAZENECA-2007AP06741

PATIENT
  Age: 33 Year
  Sex: Female

DRUGS (2)
  1. MARCAINE HYDROCHLORIDE PRESERVATIVE FREE [Suspect]
     Indication: SPINAL ANAESTHESIA
     Route: 037
  2. MORPHINE HCL ELIXIR [Concomitant]
     Indication: SPINAL ANAESTHESIA
     Route: 037

REACTIONS (1)
  - DYSPNOEA [None]
